FAERS Safety Report 4902434-5 (Version None)
Quarter: 2006Q1

REPORT INFORMATION
  Report Type: 
  Country: None (occurrence: None)
  Receive Date: 20060202
  Receipt Date: 20060126
  Transmission Date: 20060701
  Serious: Yes (Other)
  Sender: FDA-Public Use
  Company Number: 13282

PATIENT
  Age: 37 Year
  Sex: Male
  Weight: 61 kg

DRUGS (2)
  1. METHOTREXATE [Suspect]
     Indication: ACUTE LYMPHOCYTIC LEUKAEMIA
     Route: 042
     Dates: start: 20051220, end: 20051220
  2. METHOTREXATE [Suspect]
     Indication: CHEMOTHERAPY
     Route: 042
     Dates: start: 20051220, end: 20051220

REACTIONS (4)
  - FEELING HOT [None]
  - FLUSHING [None]
  - INFUSION RELATED REACTION [None]
  - PYREXIA [None]
